FAERS Safety Report 9641523 (Version 1)
Quarter: 2013Q4

REPORT INFORMATION
  Report Type: Spontaneous
  Country: US (occurrence: None)
  Receive Date: 20131022
  Receipt Date: 20131022
  Transmission Date: 20140711
  Serious: Yes (Other)
  Sender: FDA-Public Use
  Company Number: None

PATIENT
  Age: 45 Year
  Sex: Male
  Weight: 124.74 kg

DRUGS (9)
  1. BUPROPION HCL XL [Suspect]
     Indication: DEPRESSION
     Route: 048
     Dates: start: 20130603, end: 20130703
  2. JANUVIA [Concomitant]
  3. METFORMIN [Concomitant]
  4. LISINOPRIL/HCTZ [Concomitant]
  5. METOPROLOL TARTRATE [Concomitant]
  6. POTASSIUM CHLORIDE [Concomitant]
  7. GLYBURDIE [Concomitant]
  8. NUCYNTA [Concomitant]
  9. ZOLPIDEM ER [Concomitant]

REACTIONS (1)
  - Hyperglycaemia [None]
